FAERS Safety Report 9673490 (Version 2)
Quarter: 2013Q4

REPORT INFORMATION
  Report Type: Spontaneous
  Country: US (occurrence: US)
  Receive Date: 20131106
  Receipt Date: 20131106
  Transmission Date: 20140711
  Serious: No
  Sender: FDA-Public Use
  Company Number: US-BAXTER-2013BAX017811

PATIENT
  Age: 57 Year
  Sex: Male

DRUGS (5)
  1. DIANEAL LOW CALCIUM [Suspect]
     Indication: PERITONEAL DIALYSIS
     Route: 033
     Dates: start: 201303, end: 201305
  2. DIANEAL LOW CALCIUM [Suspect]
     Route: 033
     Dates: start: 201305
  3. DIANEAL LOW CALCIUM (ULTRABAG) [Suspect]
     Indication: PERITONEAL DIALYSIS
     Route: 033
     Dates: start: 201305, end: 201305
  4. EXTRANEAL [Suspect]
     Indication: PERITONEAL DIALYSIS
     Route: 033
     Dates: start: 201303
  5. LASIX [Concomitant]
     Indication: OEDEMA
     Route: 048

REACTIONS (4)
  - Swelling [Recovering/Resolving]
  - Procedural complication [Recovered/Resolved]
  - Fluid retention [Recovering/Resolving]
  - Abdominal distension [Recovering/Resolving]
